FAERS Safety Report 9654259 (Version 3)
Quarter: 2013Q4

REPORT INFORMATION
  Report Type: Spontaneous
  Country: JP (occurrence: JP)
  Receive Date: 20131029
  Receipt Date: 20131128
  Transmission Date: 20140711
  Serious: Yes (Hospitalization)
  Sender: FDA-Public Use
  Company Number: JP-ROCHE-1272986

PATIENT
  Age: 68 Year
  Sex: Female

DRUGS (9)
  1. ACTEMRA [Suspect]
     Indication: RHEUMATOID ARTHRITIS
     Route: 041
     Dates: start: 20121102, end: 20130712
  2. CALBLOCK [Concomitant]
     Indication: HYPERTENSION
     Route: 048
  3. EURODIN [Concomitant]
     Indication: INSOMNIA
     Route: 048
  4. PARIET [Concomitant]
     Indication: PEPTIC ULCER
     Route: 048
  5. MYSLEE [Concomitant]
     Indication: INSOMNIA
     Route: 048
  6. PRECIPITATED CALCIUM CARBONATE [Concomitant]
     Indication: RENAL FAILURE CHRONIC
     Route: 048
  7. ADALAT CR [Concomitant]
     Indication: HYPERTENSION
     Route: 048
  8. LOXONIN [Concomitant]
     Indication: RHEUMATOID ARTHRITIS
     Dosage: FOR TON
     Route: 048
  9. LAXOBERON [Concomitant]
     Indication: CONSTIPATION
     Dosage: FOR UNCERTAIN DOSAGE AND TON
     Route: 048

REACTIONS (2)
  - Diverticular perforation [Recovered/Resolved]
  - Diverticulum intestinal haemorrhagic [Recovered/Resolved]
